FAERS Safety Report 4614201-0 (Version None)
Quarter: 2005Q1

REPORT INFORMATION
  Report Type: 
  Country: None (occurrence: None)
  Receive Date: 20050316
  Receipt Date: 20050308
  Transmission Date: 20050727
  Serious: Yes (Death, Hospitalization)
  Sender: FDA-Public Use
  Company Number: 2005SE00968

PATIENT
  Age: 64 Year
  Sex: Male

DRUGS (12)
  1. ROSUVASTATIN [Suspect]
     Indication: CARDIAC FAILURE
     Dosage: 10 MG DAILY PO
     Route: 048
     Dates: start: 20041123
  2. THEOPHTARD - SLOW RELEASE [Concomitant]
  3. BETALOC ZOK ^ASTRA^ [Concomitant]
  4. ASPIRIN [Concomitant]
  5. PLAVIX [Concomitant]
  6. NEXIUM [Concomitant]
  7. TRIATEC [Concomitant]
  8. AMILORID [Concomitant]
  9. HYDROCHLOROTHIAZID [Concomitant]
  10. DIGOXIN [Concomitant]
  11. FUROSEMIDE [Concomitant]
  12. AUGMENTIN '125' [Concomitant]

REACTIONS (4)
  - ARRHYTHMIA [None]
  - CARDIAC ARREST [None]
  - CARDIAC FAILURE [None]
  - DISEASE PROGRESSION [None]
